FAERS Safety Report 12373900 (Version 2)
Quarter: 2016Q2

REPORT INFORMATION
  Report Type: Spontaneous
  Country: US (occurrence: US)
  Receive Date: 20160517
  Receipt Date: 20160628
  Transmission Date: 20160815
  Serious: No
  Sender: FDA-Public Use
  Company Number: US-009507513-1605USA007213

PATIENT
  Age: 62 Year
  Sex: Female
  Weight: 53.97 kg

DRUGS (3)
  1. ZERBAXA [Suspect]
     Active Substance: CEFTOLOZANE SULFATE\TAZOBACTAM SODIUM
     Indication: PNEUMONIA
     Dosage: 3 G, EVERY EIGHT HOURS
     Route: 042
     Dates: start: 20150716, end: 20150716
  2. VANCOMYCIN [Concomitant]
     Active Substance: VANCOMYCIN
     Route: 042
  3. METHYLPREDNISOLONE. [Concomitant]
     Active Substance: METHYLPREDNISOLONE
     Dosage: 60 MG, Q12H
     Route: 042

REACTIONS (2)
  - Incorrect dose administered [Not Recovered/Not Resolved]
  - Product compounding quality issue [Not Recovered/Not Resolved]

NARRATIVE: CASE EVENT DATE: 20150716
